FAERS Safety Report 7488176-3 (Version None)
Quarter: 2011Q2

REPORT INFORMATION
  Report Type: 
  Country: None (occurrence: None)
  Receive Date: 20110518
  Receipt Date: 20110513
  Transmission Date: 20111010
  Serious: Yes (Other)
  Sender: FDA-Public Use
  Company Number: IT-ROCHE-777066

PATIENT
  Sex: Female

DRUGS (2)
  1. VISIPAQUE [Suspect]
     Dosage: FREQUENCY: TOTAL
     Route: 042
     Dates: start: 20110429, end: 20110429
  2. KETOROLAC TROMETHAMINE [Suspect]
     Indication: PAIN
     Dosage: FREQUENCY: TOTAL
     Route: 042
     Dates: start: 20110430, end: 20110430

REACTIONS (3)
  - NECK INJURY [None]
  - ABDOMINAL INJURY [None]
  - CHEST INJURY [None]
